FAERS Safety Report 5329483-X (Version None)
Quarter: 2007Q2

REPORT INFORMATION
  Report Type: 
  Country: None (occurrence: None)
  Receive Date: 20070221
  Receipt Date: 20060502
  Transmission Date: 20071010
  Serious: Yes (Other)
  Sender: FDA-Public Use
  Company Number: BDI-008206

PATIENT
  Age: 77 Year
  Sex: Female

DRUGS (2)
  1. ISOVUE-300 [Suspect]
     Indication: ARTERIOGRAM CAROTID
     Dosage: 30 ML ONCE IA
     Route: 013
     Dates: start: 20060502, end: 20060502
  2. ISOVUE-300 [Suspect]
     Indication: CAROTID ARTERY STENOSIS
     Dosage: 30 ML ONCE IA
     Route: 013
     Dates: start: 20060502, end: 20060502

REACTIONS (1)
  - HYPERSENSITIVITY [None]
